FAERS Safety Report 7212520-5 (Version None)
Quarter: 2011Q1

REPORT INFORMATION
  Report Type: 
  Country: None (occurrence: None)
  Receive Date: 20110106
  Receipt Date: 20101227
  Transmission Date: 20110831
  Serious: Yes (Other)
  Sender: FDA-Public Use
  Company Number: PHHY2010JP85631

PATIENT

DRUGS (1)
  1. CARBAMAZEPINE [Suspect]
     Dosage: UNK

REACTIONS (1)
  - ELECTROCARDIOGRAM QT SHORTENED [None]
